FAERS Safety Report 20779189 (Version 1)
Quarter: 2022Q2

REPORT INFORMATION
  Report Type: Spontaneous
  Country: US (occurrence: US)
  Receive Date: 20220503
  Receipt Date: 20220503
  Transmission Date: 20220720
  Serious: No
  Sender: FDA-Public Use
  Company Number: US-PFIZER INC-2021378789

PATIENT
  Age: 69 Year

DRUGS (1)
  1. PREMARIN [Suspect]
     Active Substance: ESTROGENS, CONJUGATED
     Dosage: USE DIME SIZED AMT TWICE WEEKLY INTRAVAGINALLY
     Route: 067

REACTIONS (2)
  - Pruritus [Unknown]
  - Off label use [Unknown]
